FAERS Safety Report 20682075 (Version 1)
Quarter: 2022Q2

REPORT INFORMATION
  Report Type: Spontaneous
  Country: US (occurrence: US)
  Receive Date: 20220407
  Receipt Date: 20220407
  Transmission Date: 20220720
  Serious: Yes (Hospitalization, Other)
  Sender: FDA-Public Use
  Company Number: US-CADILA HEALTHCARE LIMITED-US-ZYDUS-076589

PATIENT

DRUGS (8)
  1. ARIPIPRAZOLE [Suspect]
     Active Substance: ARIPIPRAZOLE
     Indication: Product used for unknown indication
     Dosage: 10 MILLIGRAM
     Route: 065
  2. ARIPIPRAZOLE [Suspect]
     Active Substance: ARIPIPRAZOLE
     Dosage: 25 MILLIGRAM
     Route: 065
  3. RISPERIDONE [Suspect]
     Active Substance: RISPERIDONE
     Indication: Product used for unknown indication
     Dosage: 4 MILLIGRAM
     Route: 065
  4. RISPERIDONE [Suspect]
     Active Substance: RISPERIDONE
     Dosage: 5 MILLIGRAM
     Route: 065
  5. RISPERIDONE [Suspect]
     Active Substance: RISPERIDONE
     Dosage: 6 MILLIGRAM
     Route: 065
  6. RISPERIDONE [Suspect]
     Active Substance: RISPERIDONE
     Dosage: 5 MILLIGRAM
     Route: 065
  7. DIVALPROEX SODIUM [Suspect]
     Active Substance: DIVALPROEX SODIUM
     Indication: Product used for unknown indication
     Dosage: 1000 MILLIGRAM
     Route: 065
  8. HALOPERIDOL [Concomitant]
     Active Substance: HALOPERIDOL
     Indication: Product used for unknown indication
     Dosage: 10 MILLIGRAM
     Route: 065

REACTIONS (2)
  - Substance-induced psychotic disorder [Recovering/Resolving]
  - Drug ineffective [Unknown]
